FAERS Safety Report 10638635 (Version 1)
Quarter: 2014Q4

REPORT INFORMATION
  Report Type: Spontaneous
  Country: US (occurrence: US)
  Receive Date: 20141208
  Receipt Date: 20141208
  Transmission Date: 20150529
  Serious: Yes (Other)
  Sender: FDA-Public Use
  Company Number: US-SA-2014SA094920

PATIENT

DRUGS (2)
  1. FERRLECIT [Suspect]
     Active Substance: SODIUM FERRIC GLUCONATE COMPLEX
     Indication: ANAEMIA
     Dosage: DOSE: 125 MG IN 100 ML NS?FREQUENCY: ONCE?INFUSION
     Route: 065
     Dates: start: 20140708, end: 20140714
  2. FERRLECIT [Suspect]
     Active Substance: SODIUM FERRIC GLUCONATE COMPLEX
     Indication: ANAEMIA
     Dosage: DOSE: 125 MG IN 100 ML NS?FREQUENCY: ONCE?INFUSION
     Route: 065
     Dates: start: 20140708, end: 20140714

REACTIONS (7)
  - Swelling face [Unknown]
  - Urinary incontinence [Unknown]
  - Hypotension [Unknown]
  - Hyperhidrosis [Unknown]
  - Seizure [Unknown]
  - Bradycardia [Unknown]
  - Nausea [Unknown]

NARRATIVE: CASE EVENT DATE: 2014
